FAERS Safety Report 20040961 (Version 2)
Quarter: 2023Q1

REPORT INFORMATION
  Report Type: Spontaneous
  Country: US (occurrence: US)
  Receive Date: 20211107
  Receipt Date: 20230317
  Transmission Date: 20230418
  Serious: No
  Sender: FDA-Public Use
  Company Number: US-SA-SAC20211102001319

PATIENT
  Age: 61 Year
  Sex: Female

DRUGS (20)
  1. DUPIXENT [Suspect]
     Active Substance: DUPILUMAB
     Indication: Asthma
     Dosage: 300 MG, QOW
     Route: 058
     Dates: start: 20210223
  2. DUPIXENT [Suspect]
     Active Substance: DUPILUMAB
     Dosage: 300 MG, QOW
     Route: 058
     Dates: start: 20211002
  3. PREDNISONE [Concomitant]
     Active Substance: PREDNISONE
  4. CLONAZEPAM [Concomitant]
     Active Substance: CLONAZEPAM
  5. AZITHROMYCIN [Concomitant]
     Active Substance: AZITHROMYCIN
  6. BENZONATATE [Concomitant]
     Active Substance: BENZONATATE
  7. CARVEDILOL [Concomitant]
     Active Substance: CARVEDILOL
  8. FLUOXETINE [Concomitant]
     Active Substance: FLUOXETINE HYDROCHLORIDE
  9. IPRATROPIUM [Concomitant]
     Active Substance: IPRATROPIUM
  10. LOSARTAN POTASSIUM [Concomitant]
     Active Substance: LOSARTAN POTASSIUM
  11. MONTELUKAST [Concomitant]
     Active Substance: MONTELUKAST SODIUM
  12. MYRBETRIQ [Concomitant]
     Active Substance: MIRABEGRON
  13. ONDANSETRON [Concomitant]
     Active Substance: ONDANSETRON
  14. OXYCODONE [Concomitant]
     Active Substance: OXYCODONE
  15. PREMARIN [Concomitant]
     Active Substance: ESTROGENS, CONJUGATED
  16. SPIRONOLACTONE [Concomitant]
     Active Substance: SPIRONOLACTONE
  17. TAMSULOSIN [Concomitant]
     Active Substance: TAMSULOSIN
  18. BUPROPION HYDROCHLORIDE XL [Concomitant]
     Active Substance: BUPROPION HYDROCHLORIDE
  19. HYDROXYZINE PAMOATE [Concomitant]
     Active Substance: HYDROXYZINE PAMOATE
  20. SPIRONOLACTONE [Concomitant]
     Active Substance: SPIRONOLACTONE

REACTIONS (2)
  - Impaired quality of life [Not Recovered/Not Resolved]
  - Therapeutic product effect decreased [Unknown]

NARRATIVE: CASE EVENT DATE: 20210101
